FAERS Safety Report 6666101-2 (Version None)
Quarter: 2010Q2

REPORT INFORMATION
  Report Type: 
  Country: None (occurrence: None)
  Receive Date: 20100402
  Receipt Date: 20100324
  Transmission Date: 20101027
  Serious: Yes (Hospitalization, Other)
  Sender: FDA-Public Use
  Company Number: FR-JNJFOC-20091207405

PATIENT
  Age: 50 Year
  Sex: Male

DRUGS (2)
  1. REMICADE [Suspect]
     Indication: PSORIATIC ARTHROPATHY
     Route: 042
     Dates: start: 20081001, end: 20091201
  2. NOVATREX NOS [Concomitant]
     Indication: PSORIATIC ARTHROPATHY

REACTIONS (2)
  - AMYOTROPHY [None]
  - SCIATICA [None]
